FAERS Safety Report 7621978-9 (Version None)
Quarter: 2011Q3

REPORT INFORMATION
  Report Type: 
  Country: None (occurrence: None)
  Receive Date: 20110720
  Receipt Date: 20110713
  Transmission Date: 20111222
  Serious: Yes (Other)
  Sender: FDA-Public Use
  Company Number: BR-BRISTOL-MYERS SQUIBB COMPANY-15906043

PATIENT
  Sex: Male

DRUGS (1)
  1. APROVEL TABS 300 MG [Suspect]

REACTIONS (1)
  - DIVERTICULITIS [None]
